FAERS Safety Report 19421746 (Version 3)
Quarter: 2024Q1

REPORT INFORMATION
  Report Type: Report from Study
  Country: GB (occurrence: GB)
  Receive Date: 20210615
  Receipt Date: 20240301
  Transmission Date: 20240409
  Serious: Yes (Hospitalization, Other)
  Sender: FDA-Public Use
  Company Number: GB-LEO PHARMA-335518

PATIENT
  Age: 71 Year
  Sex: Female

DRUGS (61)
  1. BRODALUMAB [Suspect]
     Active Substance: BRODALUMAB
     Indication: Psoriasis
     Dosage: DOSAGE : 210MG WEEK 0, 1, 2 THEN EVERY TWO WEEKS ADMINISTERED VIA SUBCUTANEOUS INJECTION
     Route: 058
     Dates: start: 20200922
  2. BRODALUMAB [Suspect]
     Active Substance: BRODALUMAB
     Route: 065
     Dates: start: 20201001
  3. ENSTILAR [Suspect]
     Active Substance: BETAMETHASONE DIPROPIONATE\CALCIPOTRIENE HYDRATE
     Indication: Product used for unknown indication
     Route: 065
     Dates: start: 20200630
  4. IBUPROFEN [Concomitant]
     Active Substance: IBUPROFEN
     Indication: Product used for unknown indication
     Dates: start: 20080117, end: 20200324
  5. IBUPROFEN [Concomitant]
     Active Substance: IBUPROFEN
     Dates: start: 20230605, end: 20230613
  6. BECLOMETHASONE DIPROPIONATE [Concomitant]
     Active Substance: BECLOMETHASONE DIPROPIONATE
     Indication: Product used for unknown indication
     Dates: start: 20080201, end: 20190108
  7. HYDRALAZINE [Concomitant]
     Active Substance: HYDRALAZINE HYDROCHLORIDE
     Indication: Product used for unknown indication
     Dates: start: 20160104, end: 20160204
  8. SERTRALINE [Concomitant]
     Active Substance: SERTRALINE HYDROCHLORIDE
     Indication: Product used for unknown indication
     Dates: start: 20160104, end: 20191130
  9. OMEPRAZOLE [Concomitant]
     Active Substance: OMEPRAZOLE
     Indication: Product used for unknown indication
     Dates: start: 20170102
  10. FOLIC ACID [Concomitant]
     Active Substance: FOLIC ACID
     Indication: Product used for unknown indication
     Dates: start: 20180509
  11. FELODIPINE [Concomitant]
     Active Substance: FELODIPINE
     Indication: Product used for unknown indication
     Dates: start: 20181206
  12. HYDROXYZINE [Concomitant]
     Active Substance: HYDROXYZINE HYDROCHLORIDE
     Indication: Product used for unknown indication
     Dates: start: 20180206
  13. MONTELUKAST [Concomitant]
     Active Substance: MONTELUKAST SODIUM
     Indication: Product used for unknown indication
     Dates: start: 20181206
  14. METHOTREXATE [Concomitant]
     Active Substance: METHOTREXATE
     Indication: Product used for unknown indication
     Dates: start: 20200701
  15. FLUCLOXACILLIN [Concomitant]
     Active Substance: FLUCLOXACILLIN
     Indication: Product used for unknown indication
     Dates: start: 20210423
  16. FLUCLOXACILLIN [Concomitant]
     Active Substance: FLUCLOXACILLIN
     Dates: start: 20221228, end: 20230103
  17. FLUCLOXACILLIN [Concomitant]
     Active Substance: FLUCLOXACILLIN
     Dates: start: 20230130, end: 20230205
  18. FLUCLOXACILLIN [Concomitant]
     Active Substance: FLUCLOXACILLIN
     Dates: start: 20230307, end: 20230313
  19. FLUCLOXACILLIN [Concomitant]
     Active Substance: FLUCLOXACILLIN
     Dates: start: 20230512, end: 20230518
  20. ALBUTEROL [Concomitant]
     Active Substance: ALBUTEROL
     Indication: Product used for unknown indication
     Dates: start: 20181206
  21. BETAMETHASONE DIPROPIONATE\CALCIPOTRIENE MONOHYDRATE [Concomitant]
     Active Substance: BETAMETHASONE DIPROPIONATE\CALCIPOTRIENE MONOHYDRATE
     Indication: Product used for unknown indication
     Dates: start: 20210128
  22. LANSOPRAZOLE [Concomitant]
     Active Substance: LANSOPRAZOLE
     Indication: Product used for unknown indication
     Dates: start: 20210211, end: 20210718
  23. DIPROBASE [PARAFFIN, LIQUID;WHITE SOFT PARAFFIN] [Concomitant]
     Indication: Product used for unknown indication
     Dates: start: 20210323
  24. TEICOPLANIN [Concomitant]
     Active Substance: TEICOPLANIN
     Indication: Product used for unknown indication
     Dates: start: 20230517, end: 20230521
  25. DALTEPARIN [Concomitant]
     Active Substance: DALTEPARIN
     Indication: Product used for unknown indication
     Dates: start: 20230604, end: 20230619
  26. ACETAMINOPHEN [Concomitant]
     Active Substance: ACETAMINOPHEN
     Indication: Product used for unknown indication
     Dates: start: 20230604, end: 20230619
  27. CODEINE [Concomitant]
     Active Substance: CODEINE
     Indication: Product used for unknown indication
     Dates: start: 20230605, end: 20230619
  28. ZOSYN [Concomitant]
     Active Substance: PIPERACILLIN SODIUM\TAZOBACTAM SODIUM
     Indication: Product used for unknown indication
     Dates: start: 20230606, end: 20230612
  29. BETAMETHASONE;NEOMYCIN [Concomitant]
     Indication: Product used for unknown indication
     Dates: start: 20230606, end: 20230619
  30. CLOTRIMAZOLE [Concomitant]
     Active Substance: CLOTRIMAZOLE
     Indication: Product used for unknown indication
     Dates: start: 20230608, end: 20230618
  31. METRONIDAZOLE [Concomitant]
     Active Substance: METRONIDAZOLE
     Indication: Product used for unknown indication
     Dates: start: 20230609, end: 20230612
  32. ONDANSETRON [Concomitant]
     Active Substance: ONDANSETRON
     Indication: Product used for unknown indication
     Dates: start: 20230611, end: 20230611
  33. FLUCONAZOLE [Concomitant]
     Active Substance: FLUCONAZOLE
     Indication: Product used for unknown indication
     Dates: start: 20230612, end: 20230619
  34. SPIRONOLACTONE [Concomitant]
     Active Substance: SPIRONOLACTONE
     Indication: Product used for unknown indication
     Dates: start: 20230613, end: 20230619
  35. DILTIAZEM HYDROCHLORIDE [Concomitant]
     Active Substance: DILTIAZEM HYDROCHLORIDE
     Indication: Product used for unknown indication
     Dates: start: 20230613, end: 20230619
  36. DOXYCYCLINE [Concomitant]
     Active Substance: DOXYCYCLINE
     Indication: Product used for unknown indication
     Dates: start: 20230613, end: 20230629
  37. DOXYCYCLINE [Concomitant]
     Active Substance: DOXYCYCLINE
     Dates: start: 20231103, end: 20231203
  38. CHLORPHENIRAMINE MALEATE [Concomitant]
     Active Substance: CHLORPHENIRAMINE MALEATE
     Indication: Product used for unknown indication
     Dates: start: 20230613, end: 20230619
  39. CIPROFLOXACIN [Concomitant]
     Active Substance: CIPROFLOXACIN
     Indication: Product used for unknown indication
     Dates: start: 20230613, end: 20230629
  40. CLOTRIMAZOLE\HYDROCORTISONE [Concomitant]
     Active Substance: CLOTRIMAZOLE\HYDROCORTISONE
     Indication: Product used for unknown indication
     Dates: start: 20230613, end: 20230619
  41. DERMOL [Concomitant]
     Active Substance: BENZALKONIUM CHLORIDE\CHLORHEXIDINE HYDROCHLORIDE\ISOPROPYL MYRISTATE\PARAFFIN
     Indication: Product used for unknown indication
     Dates: start: 20230614, end: 20230619
  42. QV [CETYL ALCOHOL;GLYCEROL;PARAFFIN] [Concomitant]
     Indication: Product used for unknown indication
     Dates: start: 20230614, end: 20230619
  43. QV [CETYL ALCOHOL;GLYCEROL;PARAFFIN] [Concomitant]
     Dosage: WASH
     Dates: start: 20230627
  44. OILATUM [PARAFFIN, LIQUID] [Concomitant]
     Indication: Product used for unknown indication
     Dates: start: 20230627
  45. PARAFFIN [Concomitant]
     Active Substance: PARAFFIN
     Indication: Product used for unknown indication
     Dates: start: 20230627
  46. MEDIDERM [TRIAMCINOLONE ACETONIDE] [Concomitant]
     Indication: Product used for unknown indication
     Dates: start: 20230705, end: 20230830
  47. TERBINAFINE HYDROCHLORIDE [Concomitant]
     Active Substance: TERBINAFINE HYDROCHLORIDE
     Indication: Product used for unknown indication
     Dates: start: 20230705, end: 20230830
  48. CLARITHROMYCIN [Concomitant]
     Active Substance: CLARITHROMYCIN
     Indication: Product used for unknown indication
     Dates: start: 20230731, end: 20230806
  49. CLARITHROMYCIN [Concomitant]
     Active Substance: CLARITHROMYCIN
     Dates: start: 20230104, end: 20230110
  50. CLARITHROMYCIN [Concomitant]
     Active Substance: CLARITHROMYCIN
     Dates: start: 20230113, end: 20230119
  51. TRIMOVATE [Concomitant]
     Active Substance: CLOBETASONE BUTYRATE\NYSTATIN\OXYTETRACYCLINE CALCIUM
     Indication: Product used for unknown indication
     Dates: start: 20230915, end: 20231015
  52. PREDNISOLONE [Concomitant]
     Active Substance: PREDNISOLONE
     Indication: Product used for unknown indication
     Dates: start: 20231103, end: 20231108
  53. FEXOFENADINE [Concomitant]
     Active Substance: FEXOFENADINE HYDROCHLORIDE
     Indication: Product used for unknown indication
     Dates: start: 20210323, end: 20210523
  54. CLOBETASOL PROPIONATE [Concomitant]
     Active Substance: CLOBETASOL PROPIONATE
     Indication: Product used for unknown indication
     Dates: start: 20220520
  55. CLOBETASOL PROPIONATE [Concomitant]
     Active Substance: CLOBETASOL PROPIONATE
     Dates: start: 20220617
  56. NYSTATIN [Concomitant]
     Active Substance: NYSTATIN
     Indication: Product used for unknown indication
     Dates: start: 20220617, end: 20220617
  57. BETAMETHASONE DIPROPIONATE\CLOTRIMAZOLE [Concomitant]
     Active Substance: BETAMETHASONE DIPROPIONATE\CLOTRIMAZOLE
     Indication: Product used for unknown indication
     Dates: start: 20220617
  58. CHLORAMPHENICOL [Concomitant]
     Active Substance: CHLORAMPHENICOL
     Indication: Product used for unknown indication
     Dates: start: 20221228, end: 20230128
  59. ERYTHROMYCIN [Concomitant]
     Active Substance: ERYTHROMYCIN
     Indication: Product used for unknown indication
     Dates: start: 20230329, end: 20230404
  60. AMOXICILLIN\CLAVULANATE POTASSIUM [Concomitant]
     Active Substance: AMOXICILLIN\CLAVULANATE POTASSIUM
     Indication: Product used for unknown indication
     Dates: start: 20230604, end: 20230606
  61. AMOXICILLIN\CLAVULANATE POTASSIUM [Concomitant]
     Active Substance: AMOXICILLIN\CLAVULANATE POTASSIUM
     Dates: start: 20230513, end: 20230517

REACTIONS (16)
  - Dyspnoea [Unknown]
  - Dermatitis [Recovered/Resolved with Sequelae]
  - Cough [Unknown]
  - Peripheral swelling [Not Recovered/Not Resolved]
  - Panniculitis [Recovered/Resolved]
  - Pain in extremity [Unknown]
  - Erythema [Unknown]
  - Peripheral swelling [Unknown]
  - Condition aggravated [Unknown]
  - Mobility decreased [Unknown]
  - Pruritus [Unknown]
  - Skin burning sensation [Unknown]
  - Skin wound [Unknown]
  - Cellulitis [Recovered/Resolved with Sequelae]
  - Cellulitis [Recovered/Resolved]
  - Fungal infection [Unknown]

NARRATIVE: CASE EVENT DATE: 20210201
